FAERS Safety Report 11220202 (Version 1)
Quarter: 2015Q2

REPORT INFORMATION
  Report Type: Report from Study
  Country: US (occurrence: US)
  Receive Date: 20150625
  Receipt Date: 20150625
  Transmission Date: 20150821
  Serious: No
  Sender: FDA-Public Use
  Company Number: US-EXELIXIS-CABO-15005260

PATIENT
  Age: 76 Year
  Sex: Female

DRUGS (14)
  1. GLEEVEC [Concomitant]
     Active Substance: IMATINIB MESYLATE
  2. CABOZANTINIB [Suspect]
     Active Substance: CABOZANTINIB
     Indication: LUNG NEOPLASM MALIGNANT
     Dosage: 100 MG, QD
     Route: 048
     Dates: start: 20150228, end: 201503
  3. CABOZANTINIB [Suspect]
     Active Substance: CABOZANTINIB
     Dosage: 40 MG, QD
     Route: 048
     Dates: start: 201505
  4. BENZONATATE. [Concomitant]
     Active Substance: BENZONATATE
  5. MULTIVITAMIN [Concomitant]
     Active Substance: VITAMINS
  6. RESTORIL [Concomitant]
     Active Substance: TEMAZEPAM
  7. TRAMADOL [Concomitant]
     Active Substance: TRAMADOL
  8. TEMAZEPAM. [Concomitant]
     Active Substance: TEMAZEPAM
  9. SENNA [Concomitant]
     Active Substance: SENNA LEAF\SENNOSIDES\SENNOSIDES A AND B
  10. CABOZANTINIB [Suspect]
     Active Substance: CABOZANTINIB
     Dosage: 60 MG, QD
     Route: 048
     Dates: start: 201504, end: 2015
  11. BENEFIBER [Concomitant]
     Active Substance: STARCH, WHEAT
  12. CABOZANTINIB [Suspect]
     Active Substance: CABOZANTINIB
     Dosage: 80 MG, QD
     Route: 048
     Dates: start: 20150322, end: 20150402
  13. PRILOSEC [Concomitant]
     Active Substance: OMEPRAZOLE MAGNESIUM
  14. PREVIDENT [Concomitant]
     Active Substance: SODIUM FLUORIDE

REACTIONS (18)
  - Blister [Recovering/Resolving]
  - Constipation [Unknown]
  - Oral mucosal blistering [Recovered/Resolved]
  - Skin reaction [Unknown]
  - Erythema [Unknown]
  - Drug intolerance [Unknown]
  - Urinary tract infection [Unknown]
  - Palmar-plantar erythrodysaesthesia syndrome [Unknown]
  - Peripheral swelling [Recovered/Resolved]
  - Purulent discharge [Unknown]
  - Stomatitis [Unknown]
  - Impaired healing [Unknown]
  - Diarrhoea [Unknown]
  - Unevaluable event [Unknown]
  - Rectal haemorrhage [Unknown]
  - Oral discomfort [Unknown]
  - Off label use [Unknown]
  - Nausea [Unknown]

NARRATIVE: CASE EVENT DATE: 20150607
